FAERS Safety Report 18174047 (Version 1)
Quarter: 2020Q3

REPORT INFORMATION
  Report Type: Spontaneous
  Country: US (occurrence: US)
  Receive Date: 20200819
  Receipt Date: 20200819
  Transmission Date: 20201103
  Serious: No
  Sender: FDA-Public Use
  Company Number: None

PATIENT
  Age: 45 Year
  Sex: Female
  Weight: 86.4 kg

DRUGS (3)
  1. IRON SUPPLEMENT [Concomitant]
     Active Substance: IRON
  2. METRONIDAZOLE VAGINAL GEL [Suspect]
     Active Substance: METRONIDAZOLE
     Indication: BACTERIAL INFECTION
     Dosage: ?          QUANTITY:5 APPLICATORS;?
     Route: 067
     Dates: start: 20200725, end: 20200727
  3. TYLENOL ARTHRITIS PAIN [Concomitant]
     Active Substance: ACETAMINOPHEN

REACTIONS (6)
  - Pruritus [None]
  - Burning sensation [None]
  - Rash [None]
  - Dyspareunia [None]
  - Vaginal discharge [None]
  - Vulvovaginal dryness [None]

NARRATIVE: CASE EVENT DATE: 20200725
